FAERS Safety Report 24033756 (Version 2)
Quarter: 2024Q3

REPORT INFORMATION
  Report Type: Spontaneous
  Country: US (occurrence: US)
  Receive Date: 20240701
  Receipt Date: 20240720
  Transmission Date: 20241016
  Serious: Yes (Other)
  Sender: AUROBINDO
  Company Number: US-MLMSERVICE-20240614-PI101107-00312-1

PATIENT
  Age: 53 Year
  Sex: Female

DRUGS (1)
  1. TESTOSTERONE [Suspect]
     Active Substance: TESTOSTERONE
     Indication: Hormone therapy
     Dosage: UNK,TOTAL DOSE OF 150MG ADMINISTERED EVERY 3.5 MONTHS
     Route: 065

REACTIONS (2)
  - Choristoma [Recovering/Resolving]
  - Prostatic disorder [Unknown]
